FAERS Safety Report 24126754 (Version 1)
Quarter: 2024Q3

REPORT INFORMATION
  Report Type: Spontaneous
  Country: US (occurrence: None)
  Receive Date: 20240722
  Receipt Date: 20240722
  Transmission Date: 20241017
  Serious: Yes (Hospitalization)
  Sender: Public
  Company Number: None

PATIENT
  Age: 66 Year
  Sex: Female

DRUGS (1)
  1. VEMLIDY [Suspect]
     Active Substance: TENOFOVIR ALAFENAMIDE FUMARATE
     Indication: Antiviral prophylaxis
     Dosage: FREQUENCY : DAILY;?
     Route: 048
     Dates: start: 202103

REACTIONS (2)
  - Renal disorder [None]
  - Vasculitis [None]

NARRATIVE: CASE EVENT DATE: 20240531
